FAERS Safety Report 4961596-4 (Version None)
Quarter: 2006Q1

REPORT INFORMATION
  Report Type: 
  Country: None (occurrence: None)
  Receive Date: 20060329
  Receipt Date: 20060317
  Transmission Date: 20060701
  Serious: Yes (Hospitalization)
  Sender: FDA-Public Use
  Company Number: 2006031742

PATIENT
  Age: 73 Year
  Sex: Male

DRUGS (12)
  1. SOLU-MEDROL [Suspect]
     Indication: DYSPNOEA
     Dosage: 200 MG, INTRAVENOUS
     Route: 042
     Dates: start: 20050410, end: 20060221
  2. CLARITHROMYCIN [Concomitant]
  3. MAGNESIUM OXIDE (MAGNESIUM OXIDE) [Concomitant]
  4. CEREKINON (TRIMEBUTINE MALEATE) [Concomitant]
  5. THEO-DUR [Concomitant]
  6. FAMOTIDINE [Concomitant]
  7. VIT K CAP [Concomitant]
  8. KODESORUVAN (AMBROXOL HYDROCHLORIDE) [Concomitant]
  9. MEDICON (DEXTROMETHORPHAN HYDROBROMIDE) [Concomitant]
  10. SEREVENT [Concomitant]
  11. ACTIT (MAGNESIUM CHLORIDE ANHYDROUS, MALTOSE, POTASSIUM CHLORIDE, POTA [Concomitant]
  12. AMINOPHYLLIN [Concomitant]

REACTIONS (7)
  - ASTHMA [None]
  - CONDITION AGGRAVATED [None]
  - CYANOSIS [None]
  - DRUG INEFFECTIVE [None]
  - LUNG INFILTRATION [None]
  - ORTHOPNOEA [None]
  - PYREXIA [None]
